FAERS Safety Report 13458591 (Version 10)
Quarter: 2017Q4

REPORT INFORMATION
  Report Type: Report from Study
  Country: None (occurrence: BE)
  Receive Date: 20170419
  Receipt Date: 20171112
  Transmission Date: 20180320
  Serious: Yes (Other)
  Sender: FDA-Public Use
  Company Number: BE-ABBVIE-17K-013-1944885-00

PATIENT
  Age: 71 Year
  Sex: Female

DRUGS (14)
  1. DUODOPA [Suspect]
     Active Substance: CARBIDOPA\LEVODOPA
     Indication: PARKINSON^S DISEASE
     Dosage: AM=10ML, CD=2.7ML/HR DURING 16HRS, ED=1.5ML
     Route: 050
     Dates: start: 20170410, end: 20170413
  2. DUODOPA [Suspect]
     Active Substance: CARBIDOPA\LEVODOPA
     Dosage: MD: 5ML, CD: 2.5ML/H FOR 16HRS; ED: 2ML
     Route: 050
     Dates: start: 20171107
  3. DUODOPA [Suspect]
     Active Substance: CARBIDOPA\LEVODOPA
     Dosage: AM: 10 ML?CD: 2.4 ML/HR DURING 16 HRS?ED: 1.5 ML
     Route: 050
     Dates: start: 20170502, end: 20170606
  4. DUODOPA [Suspect]
     Active Substance: CARBIDOPA\LEVODOPA
     Dosage: MD=5ML CD=2.3ML/HR DURING 16HRS EDA=2ML
     Route: 050
     Dates: start: 20171004, end: 20171107
  5. LEVODOPA/BENSERAZIDE [Concomitant]
     Active Substance: BENSERAZIDE\LEVODOPA
     Indication: PRODUCT USED FOR UNKNOWN INDICATION
     Dosage: DURING THE NIGHT IF NEEDED
  6. DUODOPA [Suspect]
     Active Substance: CARBIDOPA\LEVODOPA
     Dosage: AM: 10 ML, CD: 2.6 ML/HR DURING 16 HRS, ED: 1.5 ML
     Route: 050
     Dates: start: 20170427, end: 20170502
  7. DUODOPA [Suspect]
     Active Substance: CARBIDOPA\LEVODOPA
     Dosage: MD= 8 ML; CD= 2.4 ML/H DURING 16 HRS; EDA= 1.5 ML
     Route: 050
     Dates: start: 20170606, end: 20170620
  8. PROLOPA DISP [Concomitant]
     Indication: PRODUCT USED FOR UNKNOWN INDICATION
     Dosage: IN THE MORNING, WHEN GETTING UP, DISPERSIBLE
  9. PROLOPA DISP [Concomitant]
     Dosage: DURING THE NIGHT IF NEEDED
  10. DUODOPA [Suspect]
     Active Substance: CARBIDOPA\LEVODOPA
     Dosage: AM=10ML, CD=2.5ML/HR DURING 16HRS, ED=1.5ML
     Route: 050
     Dates: start: 20170413, end: 20170420
  11. DUODOPA [Suspect]
     Active Substance: CARBIDOPA\LEVODOPA
     Dosage: AM=10ML, CD: 2.7 ML/HR DURING 16 HRS, ED: 1.5 ML
     Route: 050
     Dates: start: 20170420, end: 20170427
  12. DUODOPA [Suspect]
     Active Substance: CARBIDOPA\LEVODOPA
     Dosage: MD= 7 ML; CD= 2.4 ML/H DURING 16 HRS; EDA= 1.5 ML
     Route: 050
     Dates: start: 20170620, end: 20170915
  13. DUODOPA [Suspect]
     Active Substance: CARBIDOPA\LEVODOPA
     Dosage: MD= 5 ML; CD= 2.4 ML/H DURING 16 HRS; EDA= 2 ML
     Route: 050
     Dates: start: 20170915, end: 20171004
  14. REQUIP [Suspect]
     Active Substance: ROPINIROLE HYDROCHLORIDE
     Indication: RESTLESS LEGS SYNDROME
     Route: 065

REACTIONS (11)
  - Dyskinesia [Recovered/Resolved]
  - Restless legs syndrome [Not Recovered/Not Resolved]
  - Gait disturbance [Unknown]
  - On and off phenomenon [Unknown]
  - Pneumoperitoneum [Unknown]
  - Freezing phenomenon [Not Recovered/Not Resolved]
  - Constipation [Unknown]
  - Dyskinesia [Unknown]
  - Stoma site pain [Recovering/Resolving]
  - Freezing phenomenon [Recovered/Resolved]
  - Drug ineffective [Unknown]

NARRATIVE: CASE EVENT DATE: 2017
